FAERS Safety Report 25704311 (Version 4)
Quarter: 2025Q4

REPORT INFORMATION
  Report Type: Spontaneous
  Country: US (occurrence: US)
  Receive Date: 20250820
  Receipt Date: 20251014
  Transmission Date: 20260117
  Serious: Yes (Other)
  Sender: AMGEN
  Company Number: US-AMGEN-USASP2025160948

PATIENT
  Age: 75 Year
  Sex: Female

DRUGS (31)
  1. OTEZLA [Suspect]
     Active Substance: APREMILAST
     Indication: Psoriatic arthropathy
     Dosage: 30 MILLIGRAM, BID
     Route: 048
  2. OTEZLA [Suspect]
     Active Substance: APREMILAST
     Dosage: 30 MILLIGRAM, BID
     Route: 048
  3. ADALIMUMAB [Suspect]
     Active Substance: ADALIMUMAB
     Indication: Product used for unknown indication
     Dosage: 40 MILLIGRAM
     Route: 065
  4. ACETAMINOPHEN [Concomitant]
     Active Substance: ACETAMINOPHEN
     Dosage: 500 MILLIGRAM
  5. AMLODIPINE [Concomitant]
     Active Substance: AMLODIPINE BESYLATE
     Dosage: 2.5 MILLIGRAM
  6. ASPIRIN [Concomitant]
     Active Substance: ASPIRIN
     Dosage: 81 MILLIGRAM
  7. ATORVASTATIN [Concomitant]
     Active Substance: ATORVASTATIN
     Dosage: 40 MILLIGRAM
  8. AZITHROMYCIN [Concomitant]
     Active Substance: AZITHROMYCIN
     Dosage: 500 MILLIGRAM
  9. BACLOFEN [Concomitant]
     Active Substance: BACLOFEN
     Dosage: 10 MILLIGRAM
  10. CALCIUM CARBONATE\CHOLECALCIFEROL [Concomitant]
     Active Substance: CALCIUM CARBONATE\CHOLECALCIFEROL
     Dosage: UNK
  11. CHLORTHALIDONE [Concomitant]
     Active Substance: CHLORTHALIDONE
     Dosage: 25 MILLIGRAM
  12. DICLOFENAC [Concomitant]
     Active Substance: DICLOFENAC
     Dosage: UNK
  13. DIPHENHYDRAMINE [Concomitant]
     Active Substance: DIPHENHYDRAMINE
     Dosage: UNK, 12.5/5ML
  14. DOCUSATE SODIUM [Concomitant]
     Active Substance: DOCUSATE SODIUM
     Dosage: 100 MILLIGRAM
  15. ELIQUIS [Concomitant]
     Active Substance: APIXABAN
     Dosage: 5 MILLIGRAM
  16. FERROUS SULFATE [Concomitant]
     Active Substance: FERROUS SULFATE
     Dosage: 325 MILLIGRAM
  17. GUAIFENESIN [Concomitant]
     Active Substance: GUAIFENESIN
     Dosage: 1200 MILLIGRAM
  18. KENALOG [Concomitant]
     Active Substance: TRIAMCINOLONE ACETONIDE
     Dosage: UNK, 40 INJ- 40MG/ML
  19. LEVOCETIRIZINE [Concomitant]
     Active Substance: LEVOCETIRIZINE
     Dosage: 5 MILLIGRAM
  20. LIPITOR [Concomitant]
     Active Substance: ATORVASTATIN CALCIUM
     Dosage: 40 MILLIGRAM
  21. LISINOPRIL [Concomitant]
     Active Substance: LISINOPRIL
     Dosage: 20 MILLIGRAM
  22. MAGNESIUM [Concomitant]
     Active Substance: MAGNESIUM
     Dosage: 125 MILLIGRAM
  23. MONTELUKAST [Concomitant]
     Active Substance: MONTELUKAST
     Dosage: 10 MILLIGRAM
  24. MUPIROCIN [Concomitant]
     Active Substance: MUPIROCIN
     Dosage: UNK
  25. NYSTATIN [Concomitant]
     Active Substance: NYSTATIN
     Dosage: 100000 UNK
  26. PANTOPRAZOLE [Concomitant]
     Active Substance: PANTOPRAZOLE
     Dosage: 40 MILLIGRAM
  27. PREGABALIN [Concomitant]
     Active Substance: PREGABALIN
     Dosage: 50 MILLIGRAM
  28. PROPRANOLOL [Concomitant]
     Active Substance: PROPRANOLOL HYDROCHLORIDE
     Dosage: 80 MILLIGRAM
  29. TERBINAFINE [Concomitant]
     Active Substance: TERBINAFINE
     Dosage: 250 MILLIGRAM
  30. TUMS SMOOTHIES [Concomitant]
     Active Substance: CALCIUM CARBONATE
     Dosage: 750 MILLIGRAM
  31. VITAMIN B12 [Concomitant]
     Active Substance: CYANOCOBALAMIN
     Dosage: 2000 MICROGRAM

REACTIONS (5)
  - Psoriatic arthropathy [Not Recovered/Not Resolved]
  - Therapeutic product effect incomplete [Unknown]
  - Therapy interrupted [Unknown]
  - Loss of personal independence in daily activities [Unknown]
  - Adverse drug reaction [Unknown]

NARRATIVE: CASE EVENT DATE: 20250801
